FAERS Safety Report 14828597 (Version 1)
Quarter: 2018Q2

REPORT INFORMATION
  Report Type: Spontaneous
  Country: AU (occurrence: AU)
  Receive Date: 20180430
  Receipt Date: 20180430
  Transmission Date: 20180711
  Serious: Yes (Other)
  Sender: FDA-Public Use
  Company Number: PHHY2018AU066616

PATIENT
  Age: 45 Year
  Sex: Male

DRUGS (1)
  1. CODEINE+IBUPROFEN [Suspect]
     Active Substance: CODEINE\IBUPROFEN
     Indication: MUSCULOSKELETAL DISCOMFORT
     Dosage: (30-35 TABLETS)DAILY
     Route: 065

REACTIONS (12)
  - Feeling abnormal [Unknown]
  - Gastrointestinal pain [Unknown]
  - Poor quality sleep [Recovering/Resolving]
  - Feeling guilty [Unknown]
  - Nausea [Unknown]
  - Drug dependence [Unknown]
  - Wrong technique in product usage process [Unknown]
  - Stress [Unknown]
  - Anxiety [Recovering/Resolving]
  - Drug withdrawal syndrome [Unknown]
  - Abdominal discomfort [Unknown]
  - Diarrhoea [Unknown]
